FAERS Safety Report 5367458-5 (Version None)
Quarter: 2007Q2

REPORT INFORMATION
  Report Type: 
  Country: None (occurrence: None)
  Receive Date: 20070622
  Receipt Date: 20060728
  Transmission Date: 20071010
  Serious: No
  Sender: FDA-Public Use
  Company Number: US-ASTRAZENECA-2006UW15247

PATIENT
  Age: 88 Year
  Sex: Female
  Weight: 56.7 kg

DRUGS (9)
  1. PULMICORT RESPULES [Suspect]
     Indication: PULMONARY FIBROSIS
     Dosage: 0.5 MG
     Route: 055
     Dates: start: 20040101
  2. SPIRIVA [Concomitant]
  3. DILTIAZEM [Concomitant]
  4. WARFARIN [Concomitant]
  5. TRUSOPT [Concomitant]
  6. LUMIGAN [Concomitant]
  7. CENTRUM SILVER [Concomitant]
  8. CALCITRATE [Concomitant]
  9. VITAMINS FOR EYES [Concomitant]
     Route: 047

REACTIONS (1)
  - DRY MOUTH [None]
